APPROVED DRUG PRODUCT: HELIDAC
Active Ingredient: BISMUTH SUBSALICYLATE; METRONIDAZOLE; TETRACYCLINE HYDROCHLORIDE
Strength: 262.4MG,N/A,N/A;N/A,250MG,N/A;N/A,N/A,500MG **Federal Register determination that product was not discontinued or withdrawn for safety or effectiveness reasons**
Dosage Form/Route: TABLET, CHEWABLE, TABLET, CAPSULE;ORAL
Application: N050719 | Product #001
Applicant: CASPER PHARMA LLC
Approved: Aug 15, 1996 | RLD: Yes | RS: No | Type: DISCN